FAERS Safety Report 8258253-8 (Version None)
Quarter: 2012Q2

REPORT INFORMATION
  Report Type: 
  Country: None (occurrence: None)
  Receive Date: 20120404
  Receipt Date: 20120402
  Transmission Date: 20120825
  Serious: Yes (Death, Life-Threatening, Hospitalization)
  Sender: FDA-Public Use
  Company Number: PHBS2004JP10342

PATIENT
  Sex: Female
  Weight: 45 kg

DRUGS (11)
  1. SANDOSTATIN [Suspect]
     Dosage: 50 UG/D
     Route: 058
     Dates: start: 20040720, end: 20040722
  2. SANDOSTATIN [Suspect]
     Dosage: 100 UG/D
     Route: 058
     Dates: start: 20040808, end: 20040811
  3. SANDOSTATIN [Suspect]
     Dosage: 50 UG, TID
     Route: 058
     Dates: start: 20040630, end: 20040712
  4. SANDOSTATIN [Suspect]
     Dosage: 50 UG, 6QD
     Route: 058
     Dates: start: 20040725, end: 20040807
  5. SANDOSTATIN [Suspect]
     Dosage: 200 UG/DAY
     Route: 058
     Dates: start: 20040812, end: 20050301
  6. SANDOSTATIN [Suspect]
     Indication: VIPOMA
     Dosage: 100 UG/D
     Route: 058
     Dates: start: 20040331, end: 20040629
  7. SANDOSTATIN [Suspect]
     Dosage: 50 UG, BID
     Route: 058
     Dates: start: 20040713, end: 20040719
  8. SANDOSTATIN [Suspect]
     Dosage: 300 UG DAILY
  9. SANDOSTATIN LAR [Suspect]
     Indication: VIPOMA
     Dosage: 20 MG
     Route: 030
     Dates: start: 20040707, end: 20040707
  10. LANSOPRAZOLE [Concomitant]
     Route: 048
  11. SANDOSTATIN [Suspect]
     Dosage: 50 UG, TID
     Route: 058
     Dates: start: 20040723, end: 20040724

REACTIONS (24)
  - DIARRHOEA [None]
  - RENAL FAILURE ACUTE [None]
  - DISSEMINATED INTRAVASCULAR COAGULATION [None]
  - DECREASED APPETITE [None]
  - DRUG INEFFECTIVE [None]
  - BLOOD POTASSIUM INCREASED [None]
  - BLOOD UREA INCREASED [None]
  - CIRCULATORY COLLAPSE [None]
  - DEPRESSED LEVEL OF CONSCIOUSNESS [None]
  - WHITE BLOOD CELL COUNT INCREASED [None]
  - NEOPLASM MALIGNANT [None]
  - MULTI-ORGAN FAILURE [None]
  - OLIGURIA [None]
  - VOMITING [None]
  - ABDOMINAL PAIN [None]
  - HAEMOGLOBIN DECREASED [None]
  - DEHYDRATION [None]
  - HAEMATOCRIT DECREASED [None]
  - CARDIAC FAILURE CONGESTIVE [None]
  - TUMOUR NECROSIS [None]
  - BLOOD CREATININE INCREASED [None]
  - DYSPNOEA [None]
  - BLOOD PRESSURE DECREASED [None]
  - PLATELET COUNT DECREASED [None]
